FAERS Safety Report 14327985 (Version 22)
Quarter: 2020Q3

REPORT INFORMATION
  Report Type: Report from Study
  Country: CA (occurrence: CA)
  Receive Date: 20171227
  Receipt Date: 20200807
  Transmission Date: 20201102
  Serious: Yes (Other)
  Sender: FDA-Public Use
  Company Number: CA-BRISTOL-MYERS SQUIBB COMPANY-BMS-2016-073536

PATIENT
  Age: 64 Year
  Sex: Female

DRUGS (15)
  1. PREMARIN [Concomitant]
     Active Substance: ESTROGENS, CONJUGATED
     Indication: PRODUCT USED FOR UNKNOWN INDICATION
     Dosage: UNK
     Route: 065
  2. ABATACEPT [Suspect]
     Active Substance: ABATACEPT
     Dosage: 750 MG, Q4WK
     Route: 042
     Dates: start: 20170223
  3. ABATACEPT [Suspect]
     Active Substance: ABATACEPT
     Dosage: 750 MG, QMO
     Route: 042
     Dates: start: 20180510
  4. VOLTAREN [DICLOFENAC] [Concomitant]
     Active Substance: DICLOFENAC SODIUM
     Indication: PRODUCT USED FOR UNKNOWN INDICATION
     Dosage: UNK
     Route: 065
  5. PROLIA [Concomitant]
     Active Substance: DENOSUMAB
     Indication: PRODUCT USED FOR UNKNOWN INDICATION
     Dosage: UNK
     Route: 065
  6. SALAZOPYRIN [Concomitant]
     Active Substance: SULFASALAZINE
     Indication: PRODUCT USED FOR UNKNOWN INDICATION
     Dosage: UNK
     Route: 065
  7. CODEINE [Concomitant]
     Active Substance: CODEINE
     Indication: PRODUCT USED FOR UNKNOWN INDICATION
     Dosage: UNK
     Route: 065
  8. FLURAZEPAM [Concomitant]
     Active Substance: FLURAZEPAM HYDROCHLORIDE
     Indication: PRODUCT USED FOR UNKNOWN INDICATION
     Dosage: UNK
     Route: 065
  9. SYNTHROID [Concomitant]
     Active Substance: LEVOTHYROXINE SODIUM
     Indication: PRODUCT USED FOR UNKNOWN INDICATION
     Dosage: UNK
     Route: 065
  10. ATORVASTATIN [Concomitant]
     Active Substance: ATORVASTATIN
     Indication: PRODUCT USED FOR UNKNOWN INDICATION
     Dosage: UNK
     Route: 065
  11. ABATACEPT [Suspect]
     Active Substance: ABATACEPT
     Indication: PSORIATIC ARTHROPATHY
     Dosage: 750 MILLIGRAM, Q4WK
     Route: 042
     Dates: start: 20160728
  12. LANSOPRAZOLE. [Concomitant]
     Active Substance: LANSOPRAZOLE
     Indication: PRODUCT USED FOR UNKNOWN INDICATION
     Dosage: UNK
     Route: 065
  13. CALCIUM [Concomitant]
     Active Substance: CALCIUM
     Indication: PRODUCT USED FOR UNKNOWN INDICATION
     Dosage: UNK
     Route: 065
  14. ABATACEPT [Suspect]
     Active Substance: ABATACEPT
     Indication: RHEUMATOID ARTHRITIS
     Dosage: 750 MG, Q2WK
     Route: 042
     Dates: start: 20160728
  15. ABATACEPT [Suspect]
     Active Substance: ABATACEPT
     Dosage: 500 MILLIGRAM, Q4WK
     Route: 042
     Dates: start: 20160728

REACTIONS (40)
  - Debridement [Unknown]
  - Nasopharyngitis [Recovered/Resolved]
  - Pain in extremity [Recovering/Resolving]
  - Thrombophlebitis [Unknown]
  - Infusion site pain [Recovered/Resolved]
  - Muscle spasms [Recovered/Resolved]
  - Abdominal pain upper [Unknown]
  - Erythema of eyelid [Recovered/Resolved]
  - Fungal test positive [Recovering/Resolving]
  - Oedema peripheral [Recovering/Resolving]
  - Chest pain [Unknown]
  - Hypertension [Not Recovered/Not Resolved]
  - Acne [Unknown]
  - Arthropod bite [Recovering/Resolving]
  - Limb injury [Recovering/Resolving]
  - Wound haemorrhage [Unknown]
  - Hordeolum [Recovering/Resolving]
  - Paronychia [Recovered/Resolved]
  - Fatigue [Recovering/Resolving]
  - Arthropathy [Recovered/Resolved]
  - Injury [Unknown]
  - Dry skin [Unknown]
  - Skin disorder [Unknown]
  - Peau d^orange [Unknown]
  - Paraesthesia [Unknown]
  - Lichen planus [Unknown]
  - Sleep apnoea syndrome [Unknown]
  - Joint injury [Unknown]
  - Erythema [Unknown]
  - Fall [Unknown]
  - Urinary tract infection [Unknown]
  - Cellulitis [Unknown]
  - Gastroenteritis [Recovered/Resolved]
  - Arthralgia [Recovering/Resolving]
  - Eyelid thickening [Recovered/Resolved]
  - Chalazion [Recovering/Resolving]
  - Lichen sclerosus [Unknown]
  - Cough [Recovered/Resolved]
  - Secretion discharge [Unknown]
  - Toothache [Unknown]

NARRATIVE: CASE EVENT DATE: 201610
